FAERS Safety Report 8019965-4 (Version None)
Quarter: 2011Q4

REPORT INFORMATION
  Report Type: 
  Country: None (occurrence: None)
  Receive Date: 20111227
  Receipt Date: 20111218
  Transmission Date: 20120403
  Serious: Yes (Death, Other)
  Sender: FDA-Public Use
  Company Number: 2011ST000559

PATIENT
  Age: 59 Year
  Sex: Male
  Weight: 80 kg

DRUGS (6)
  1. POLYMYXIN /00106601/ [Concomitant]
  2. VANCOMYCIN [Concomitant]
  3. AMPHOTERICIN B [Concomitant]
  4. ABELCET [Suspect]
     Indication: ASPERGILLOSIS
     Dosage: 400 MG;QD;IV ; 200 MG;QD;IV
     Route: 042
     Dates: start: 19961231, end: 19970102
  5. ABELCET [Suspect]
     Indication: ASPERGILLOSIS
     Dosage: 400 MG;QD;IV ; 200 MG;QD;IV
     Route: 042
     Dates: start: 19970103, end: 20070108
  6. CYMEVENE /00784201/ [Concomitant]

REACTIONS (3)
  - BLOOD DISORDER [None]
  - TOXICITY TO VARIOUS AGENTS [None]
  - RENAL FAILURE [None]
